FAERS Safety Report 15317344 (Version 1)
Quarter: 2018Q3

REPORT INFORMATION
  Report Type: Spontaneous
  Country: US (occurrence: US)
  Receive Date: 20180816
  Receipt Date: 20180816
  Transmission Date: 20181010
  Serious: Yes (Hospitalization)
  Sender: FDA-Public Use
  Company Number: None

PATIENT
  Age: 33 Year
  Sex: Male
  Weight: 107 kg

DRUGS (2)
  1. AZACITIDINE. [Suspect]
     Active Substance: AZACITIDINE
     Indication: ACUTE MYELOID LEUKAEMIA
     Dosage: DAYS 1?7?Q28 DAYS
     Route: 042
     Dates: start: 20180510, end: 20180731
  2. PEMBROLIZUMAB. [Suspect]
     Active Substance: PEMBROLIZUMAB
     Indication: ACUTE MYELOID LEUKAEMIA
     Route: 042
     Dates: start: 20180517, end: 20180607

REACTIONS (9)
  - Antibiotic level above therapeutic [None]
  - Nephritis [None]
  - Fluid overload [None]
  - Dyspnoea [None]
  - Renal failure [None]
  - Clostridium difficile colitis [None]
  - Pericardial effusion [None]
  - Pyrexia [None]
  - Chest pain [None]

NARRATIVE: CASE EVENT DATE: 20180723
